FAERS Safety Report 25172810 (Version 2)
Quarter: 2025Q3

REPORT INFORMATION
  Report Type: Report from Study
  Country: EU (occurrence: EU)
  Receive Date: 20250408
  Receipt Date: 20250701
  Transmission Date: 20251020
  Serious: Yes (Death, Hospitalization)
  Sender: NOVARTIS
  Company Number: EU-002147023-NVSC2025DE056550

PATIENT
  Sex: Male

DRUGS (3)
  1. COSENTYX [Suspect]
     Active Substance: SECUKINUMAB
     Indication: Psoriatic arthropathy
     Route: 058
     Dates: start: 20230203, end: 20230206
  2. TAZOBACTAM [Concomitant]
     Active Substance: TAZOBACTAM
     Indication: Product used for unknown indication
     Route: 065
  3. PIPERACILLIN [Concomitant]
     Active Substance: PIPERACILLIN
     Indication: Product used for unknown indication
     Route: 065

REACTIONS (19)
  - Septic shock [Fatal]
  - Blood pressure decreased [Fatal]
  - Haemodynamic instability [Fatal]
  - Hypothermia [Fatal]
  - Pneumonia [Fatal]
  - General physical health deterioration [Unknown]
  - Dyspnoea [Unknown]
  - Asthenia [Unknown]
  - Dysarthria [Unknown]
  - Staphylococcal bacteraemia [Unknown]
  - Metabolic acidosis [Unknown]
  - Hypernatraemia [Unknown]
  - Immune thrombocytopenia [Unknown]
  - Psoriasis [Unknown]
  - Erythema [Unknown]
  - Skin exfoliation [Unknown]
  - Tongue dry [Unknown]
  - Disturbance in attention [Unknown]
  - Aphasia [Unknown]

NARRATIVE: CASE EVENT DATE: 20230924
